FAERS Safety Report 20857313 (Version 2)
Quarter: 2022Q2

REPORT INFORMATION
  Report Type: Spontaneous
  Country: US (occurrence: US)
  Receive Date: 20220520
  Receipt Date: 20220604
  Transmission Date: 20220720
  Serious: No
  Sender: FDA-Public Use
  Company Number: US-SA-SAC20220519000683

PATIENT
  Age: 43 Year
  Sex: Male

DRUGS (8)
  1. DUPIXENT [Suspect]
     Active Substance: DUPILUMAB
     Indication: Nasal polyps
     Dosage: 300 MG, QOW
     Route: 058
     Dates: start: 20220421
  2. DUPIXENT [Suspect]
     Active Substance: DUPILUMAB
     Indication: Chronic rhinosinusitis with nasal polyps
  3. ALBUTEROL SULFATE [Concomitant]
     Active Substance: ALBUTEROL SULFATE
  4. AZELASTINE [Concomitant]
     Active Substance: AZELASTINE
  5. BUDESONIDE [Concomitant]
     Active Substance: BUDESONIDE
     Dosage: 0.25MG/2
  6. EPINEPHRINE [Concomitant]
     Active Substance: EPINEPHRINE
  7. FLUTICASONE [Concomitant]
     Active Substance: FLUTICASONE
  8. PREDNISONE [Concomitant]
     Active Substance: PREDNISONE

REACTIONS (5)
  - Arthralgia [Not Recovered/Not Resolved]
  - Asthenia [Not Recovered/Not Resolved]
  - Pain [Not Recovered/Not Resolved]
  - Arthralgia [Recovered/Resolved]
  - Product use in unapproved indication [Unknown]

NARRATIVE: CASE EVENT DATE: 20220101
